FAERS Safety Report 9235519 (Version 1)
Quarter: 2013Q2

REPORT INFORMATION
  Report Type: Spontaneous
  Country: US (occurrence: None)
  Receive Date: 20130416
  Receipt Date: 20130416
  Transmission Date: 20140414
  Serious: Yes (Other)
  Sender: FDA-Public Use
  Company Number: None

PATIENT
  Age: 60 Year
  Sex: Female
  Weight: 57.3 kg

DRUGS (8)
  1. OFIRMEV [Suspect]
     Route: 042
     Dates: start: 20130405, end: 20130411
  2. D5W 0.45% NORMAL SALINE KCL [Concomitant]
  3. FENTANYL [Concomitant]
  4. HEPARIN [Concomitant]
  5. IBUPROFEN [Concomitant]
  6. KETOROLAC [Concomitant]
  7. METOCLOPROMIDE [Concomitant]
  8. NALBUPHINE [Concomitant]

REACTIONS (1)
  - Liver function test abnormal [None]
